FAERS Safety Report 16237418 (Version 1)
Quarter: 2019Q2

REPORT INFORMATION
  Report Type: Spontaneous
  Country: US (occurrence: US)
  Receive Date: 20190424
  Receipt Date: 20190424
  Transmission Date: 20190711
  Serious: Yes (Other)
  Sender: FDA-Public Use
  Company Number: None

PATIENT
  Age: 51 Year
  Sex: Female
  Weight: 78.75 kg

DRUGS (7)
  1. MUCINEX [Concomitant]
     Active Substance: GUAIFENESIN
  2. MULTI VITAMIN [Concomitant]
     Active Substance: VITAMINS
  3. VITAMIN B COMPLEX [Concomitant]
     Active Substance: CYANOCOBALAMIN\DEXPANTHENOL\NIACINAMIDE\PYRIDOXINE HYDROCHLORIDE\RIBOFLAVIN 5^-PHOSPHATE SODIUM\THIAMINE HYDROCHLORIDE\VITAMIN B COMPLEX
  4. VITAMIN C [Concomitant]
     Active Substance: ASCORBIC ACID
  5. PROTANDIM [Concomitant]
     Active Substance: DIETARY SUPPLEMENT
  6. OSELTAMIVIR PHOSPHATE CAPSULES USP, 75MG [Suspect]
     Active Substance: OSELTAMIVIR PHOSPHATE
     Indication: INFLUENZA
     Dosage: ?          QUANTITY:10 CAPSULE(S);?
     Route: 048
     Dates: start: 20190318, end: 20190320
  7. ZINC. [Concomitant]
     Active Substance: ZINC

REACTIONS (10)
  - Asthenia [None]
  - Fall [None]
  - Head injury [None]
  - Headache [None]
  - Nausea [None]
  - Loss of consciousness [None]
  - Palpitations [None]
  - Lip injury [None]
  - Hyperhidrosis [None]
  - Disorientation [None]

NARRATIVE: CASE EVENT DATE: 20190320
